FAERS Safety Report 19507183 (Version 8)
Quarter: 2023Q1

REPORT INFORMATION
  Report Type: Spontaneous
  Country: US (occurrence: US)
  Receive Date: 20210708
  Receipt Date: 20230320
  Transmission Date: 20230418
  Serious: Yes (Other)
  Sender: FDA-Public Use
  Company Number: US-PFIZER INC-2021787741

PATIENT
  Age: 51 Year
  Sex: Female

DRUGS (6)
  1. XELJANZ XR [Suspect]
     Active Substance: TOFACITINIB CITRATE
     Indication: Psoriatic arthropathy
     Dosage: UNK
     Dates: start: 20210301
  2. XELJANZ XR [Suspect]
     Active Substance: TOFACITINIB CITRATE
     Dosage: 11 MG
     Dates: start: 20210601
  3. XELJANZ XR [Suspect]
     Active Substance: TOFACITINIB CITRATE
     Dosage: UNK
     Dates: start: 20210610
  4. XELJANZ XR [Suspect]
     Active Substance: TOFACITINIB CITRATE
     Dosage: 11 MG
     Dates: start: 20210614
  5. XELJANZ XR [Suspect]
     Active Substance: TOFACITINIB CITRATE
     Dosage: 11 MG
     Dates: start: 20210618
  6. XELJANZ XR [Suspect]
     Active Substance: TOFACITINIB CITRATE
     Dosage: 11 MG
     Dates: start: 20210728

REACTIONS (11)
  - Palmar-plantar erythrodysaesthesia syndrome [Unknown]
  - Headache [Unknown]
  - Gait inability [Unknown]
  - Therapeutic product effect incomplete [Unknown]
  - Peripheral swelling [Not Recovered/Not Resolved]
  - Scab [Unknown]
  - Epistaxis [Unknown]
  - Pain in extremity [Unknown]
  - Nasopharyngitis [Unknown]
  - Paraesthesia [Unknown]
  - Tremor [Unknown]

NARRATIVE: CASE EVENT DATE: 20210101
